FAERS Safety Report 5011178-3 (Version None)
Quarter: 2006Q2

REPORT INFORMATION
  Report Type: 
  Country: None (occurrence: None)
  Receive Date: 20060523
  Receipt Date: 20060511
  Transmission Date: 20061013
  Serious: Yes (Disabling)
  Sender: FDA-Public Use
  Company Number: 2005037990

PATIENT
  Age: 36 Year
  Sex: Female
  Weight: 70 kg

DRUGS (2)
  1. PROSTIN E2 [Suspect]
     Indication: LABOUR INDUCTION
     Dosage: 6 MG (3 MG, TWICE A DAY), VAGINAL
     Route: 067
     Dates: start: 20060301
  2. LEVOTHYROXINE SODIUM [Concomitant]

REACTIONS (13)
  - CAESAREAN SECTION [None]
  - DRUG EXPOSURE DURING PREGNANCY [None]
  - DRUG INEFFECTIVE [None]
  - FAILED INDUCTION OF LABOUR [None]
  - FLUSHING [None]
  - INADEQUATE ANALGESIA [None]
  - MUSCLE SPASMS [None]
  - PAIN IN EXTREMITY [None]
  - PARAESTHESIA [None]
  - SKIN BURNING SENSATION [None]
  - SWELLING [None]
  - SWELLING FACE [None]
  - TEMPERATURE INTOLERANCE [None]
